FAERS Safety Report 8063632-8 (Version None)
Quarter: 2012Q1

REPORT INFORMATION
  Report Type: 
  Country: None (occurrence: None)
  Receive Date: 20120123
  Receipt Date: 20120111
  Transmission Date: 20120608
  Serious: Yes (Death, Hospitalization)
  Sender: FDA-Public Use
  Company Number: SE-JNJFOC-20110606595

PATIENT
  Sex: Female

DRUGS (10)
  1. IBUPROFEN [Suspect]
     Indication: PAIN
     Route: 048
     Dates: start: 20110201, end: 20110401
  2. NITRAZEPAM [Concomitant]
  3. ASPIRIN [Concomitant]
  4. ALVEDON [Concomitant]
     Indication: PAIN
  5. METOPROLOL [Concomitant]
  6. SIMVASTATIN [Concomitant]
  7. HYDROXOCOBALAMIN [Concomitant]
  8. FUROSEMIDE [Concomitant]
  9. GLYTRIN [Concomitant]
  10. ENALAPRIL MALEATE [Concomitant]

REACTIONS (3)
  - CARDIAC FAILURE [None]
  - PNEUMOCOCCAL INFECTION [None]
  - NORMOCHROMIC NORMOCYTIC ANAEMIA [None]
